FAERS Safety Report 23047120 (Version 1)
Quarter: 2023Q4

REPORT INFORMATION
  Report Type: Spontaneous
  Country: IT (occurrence: IT)
  Receive Date: 20231009
  Receipt Date: 20231009
  Transmission Date: 20240110
  Serious: Yes (Hospitalization, Other)
  Sender: FDA-Public Use
  Company Number: IT-MALLINCKRODT-MNK202304754

PATIENT
  Age: 32 Year
  Sex: Female

DRUGS (9)
  1. UVADEX [Suspect]
     Active Substance: METHOXSALEN
     Indication: Chronic allograft nephropathy
     Dosage: UNKNOWN
     Route: 050
     Dates: start: 20210202, end: 2021
  2. UVADEX [Suspect]
     Active Substance: METHOXSALEN
     Dosage: UNK
     Route: 050
     Dates: start: 2021, end: 20210519
  3. OXYGEN [Concomitant]
     Active Substance: OXYGEN
     Dosage: UNK
  4. PREDNISONE [Concomitant]
     Active Substance: PREDNISONE
  5. PREDNISONE [Concomitant]
     Active Substance: PREDNISONE
  6. COTRIMOXAZOLE [Concomitant]
     Active Substance: SULFAMETHOXAZOLE\TRIMETHOPRIM
     Dosage: 160/800 MG
  7. MYCOPHENOLIC ACID [Concomitant]
     Active Substance: MYCOPHENOLIC ACID
  8. EVEROLIMUS [Concomitant]
     Active Substance: EVEROLIMUS
  9. TACROLIMUS [Concomitant]
     Active Substance: TACROLIMUS

REACTIONS (4)
  - Wound infection pseudomonas [Unknown]
  - Staphylococcal infection [Unknown]
  - Epstein-Barr virus test positive [Unknown]
  - Product use in unapproved indication [Unknown]

NARRATIVE: CASE EVENT DATE: 20210202
